FAERS Safety Report 13246122 (Version 1)
Quarter: 2017Q1

REPORT INFORMATION
  Report Type: Spontaneous
  Country: CA (occurrence: CA)
  Receive Date: 20170217
  Receipt Date: 20170217
  Transmission Date: 20170428
  Serious: Yes (Death)
  Sender: FDA-Public Use
  Company Number: CA-TEVA-739232ACC

PATIENT
  Age: 47 Year
  Sex: Female
  Weight: 93 kg

DRUGS (8)
  1. OLANZAPINE. [Suspect]
     Active Substance: OLANZAPINE
     Indication: PRODUCT USED FOR UNKNOWN INDICATION
     Route: 065
  2. ZOPICLONE [Suspect]
     Active Substance: ZOPICLONE
     Indication: PRODUCT USED FOR UNKNOWN INDICATION
     Route: 065
  3. QUETIAPINE. [Concomitant]
     Active Substance: QUETIAPINE
  4. CITALOPRAM [Suspect]
     Active Substance: CITALOPRAM HYDROBROMIDE
     Indication: PRODUCT USED FOR UNKNOWN INDICATION
     Route: 065
  5. DILTIAZEM CD [Concomitant]
     Active Substance: DILTIAZEM
  6. HYDROMORPHONE [Concomitant]
     Active Substance: HYDROMORPHONE
  7. STATEX [Concomitant]
     Active Substance: MORPHINE SULFATE
  8. GABAPENTIN. [Concomitant]
     Active Substance: GABAPENTIN

REACTIONS (1)
  - Toxicity to various agents [Fatal]
